FAERS Safety Report 12778281 (Version 2)
Quarter: 2017Q1

REPORT INFORMATION
  Report Type: Spontaneous
  Country: FR (occurrence: FR)
  Receive Date: 20160926
  Receipt Date: 20170118
  Transmission Date: 20170428
  Serious: Yes (Other)
  Sender: FDA-Public Use
  Company Number: FR-009507513-1609FRA008422

PATIENT
  Age: 48 Year
  Sex: Female

DRUGS (7)
  1. RISPERDAL [Concomitant]
     Active Substance: RISPERIDONE
     Dosage: 1 DF, QD
     Dates: end: 201608
  2. BACTRIM [Suspect]
     Active Substance: SULFAMETHOXAZOLE\TRIMETHOPRIM
     Indication: PNEUMOCYSTIS JIROVECII PNEUMONIA
     Dosage: 4 DF, TID
     Route: 042
     Dates: start: 20160810, end: 20160818
  3. SERESTA [Concomitant]
     Active Substance: OXAZEPAM
     Dosage: 50 MG, TID
     Route: 048
  4. RISPERDAL CONSTA [Concomitant]
     Active Substance: RISPERIDONE
     Dosage: 1DF, QOW,50 MG/ 2 ML: POWDER AND SOLVENT FOR PROLONGED RELEASE SUSPENSION FOR INJECTION IN PRE-FILLE
     Route: 030
     Dates: end: 20160819
  5. MOVICOL [Concomitant]
     Active Substance: POLYETHYLENE GLYCOL 3350\POTASSIUM CHLORIDE\SODIUM BICARBONATE\SODIUM CHLORIDE
     Dosage: 1 DF, QD
     Route: 048
  6. IMIPENEM AND CILASTATIN [Suspect]
     Active Substance: CILASTATIN SODIUM\IMIPENEM
     Indication: LUNG DISORDER
     Dosage: 2 DF, TID
     Route: 042
     Dates: start: 20160817, end: 20160818
  7. TERCIAN [Concomitant]
     Active Substance: CYAMEMAZINE
     Dosage: 0.5 DF, QID
     Route: 048

REACTIONS (2)
  - Hyperthermia [Recovering/Resolving]
  - Rash [Recovering/Resolving]

NARRATIVE: CASE EVENT DATE: 20160818
